FAERS Safety Report 16533861 (Version 3)
Quarter: 2019Q3

REPORT INFORMATION
  Report Type: Spontaneous
  Country: US (occurrence: US)
  Receive Date: 20190704
  Receipt Date: 20190731
  Transmission Date: 20191004
  Serious: Yes (Hospitalization, Other)
  Sender: FDA-Public Use
  Company Number: US-ELI_LILLY_AND_COMPANY-US201906013438

PATIENT
  Sex: Male

DRUGS (3)
  1. HUMAN NPL INSULIN (RDNA) [Suspect]
     Active Substance: INSULIN LISPRO
     Indication: PRODUCT USED FOR UNKNOWN INDICATION
     Dosage: UNK, UNKNOWN
     Route: 065
  2. HUMALOG [Suspect]
     Active Substance: INSULIN LISPRO
     Indication: TYPE 2 DIABETES MELLITUS
     Dosage: 9 U, BID
     Route: 058
     Dates: start: 201902
  3. BASAGLAR [Suspect]
     Active Substance: INSULIN GLARGINE
     Indication: TYPE 2 DIABETES MELLITUS
     Dosage: 22 U, UNKNOWN
     Route: 058
     Dates: start: 201902

REACTIONS (7)
  - Cardiovascular disorder [Unknown]
  - Cataract [Unknown]
  - Bacterial infection [Unknown]
  - Foot deformity [Unknown]
  - Diabetic ulcer [Unknown]
  - Hypertension [Recovered/Resolved]
  - Memory impairment [Unknown]
